FAERS Safety Report 6346524-1 (Version None)
Quarter: 2009Q3

REPORT INFORMATION
  Report Type: 
  Country: None (occurrence: None)
  Receive Date: 20090909
  Receipt Date: 20090828
  Transmission Date: 20100115
  Serious: Yes (Other)
  Sender: FDA-Public Use
  Company Number: DE-ELI_LILLY_AND_COMPANY-DE200908003028

PATIENT
  Sex: Female

DRUGS (3)
  1. FORTEO [Suspect]
     Indication: OSTEOPOROSIS
     Dosage: 20 UG, UNKNOWN
     Route: 058
     Dates: start: 20090127, end: 20090813
  2. OSTEOPLUS /00944201/ [Concomitant]
     Dosage: UNK, UNKNOWN
     Route: 065
  3. MICARDIS [Concomitant]
     Dosage: 80 UNK UNITS REPORTED AS CONTINUOUS THERAPY

REACTIONS (2)
  - RENAL COLIC [None]
  - URINARY TRACT OBSTRUCTION [None]
